FAERS Safety Report 14557146 (Version 1)
Quarter: 2018Q1

REPORT INFORMATION
  Report Type: Spontaneous
  Country: NL (occurrence: NL)
  Receive Date: 20180221
  Receipt Date: 20180221
  Transmission Date: 20180509
  Serious: Yes (Life-Threatening, Hospitalization)
  Sender: FDA-Public Use
  Company Number: NL-TEVA-2018-NL-858383

PATIENT
  Age: 56 Year
  Sex: Male
  Weight: 78 kg

DRUGS (8)
  1. DALTEPARINE 2500 IU ONCE DAILY 2500 IU [Concomitant]
     Dosage: ONCE DAILY 2500 IU
  2. COLECALCIFEROL DRINK 50.000IU [Concomitant]
     Dosage: 1 TIME A MONTH 10ML
  3. PARACETAMOL 500MG [Concomitant]
     Active Substance: ACETAMINOPHEN
     Dosage: AS REQUIRED 4 TIMES A DAY 2
  4. OLMESARTAN/AMLODIPINE, HYDROCHLOROTHIAZIDE (HCT) TABLET 40/10/12.5MG [Concomitant]
     Dosage: ONCE DAILY 1
  5. MACROGOL/SALTS POWDER FOR DRINK [Concomitant]
     Dosage: TWICE DAILY 1
  6. SILDENAFIL. [Suspect]
     Active Substance: SILDENAFIL
     Indication: ERECTILE DYSFUNCTION
     Dosage: SINGLE USE
     Route: 065
     Dates: start: 20171203, end: 20171205
  7. BETAHISTINE TABLET 16 MG [Concomitant]
     Dosage: 3 TIMES A DAY 1 TABLET
  8. CLEMASTINE TABLET 1MG [Concomitant]
     Dosage: AS REQUIRED ONCE DAILY 1 TABLET

REACTIONS (3)
  - Pruritus [Unknown]
  - Anaphylactic shock [Unknown]
  - Angioedema [Unknown]

NARRATIVE: CASE EVENT DATE: 20171204
